FAERS Safety Report 9292566 (Version 1)
Quarter: 2013Q2

REPORT INFORMATION
  Report Type: Spontaneous
  Country: JP (occurrence: JP)
  Receive Date: 20130516
  Receipt Date: 20130516
  Transmission Date: 20140414
  Serious: Yes (Other)
  Sender: FDA-Public Use
  Company Number: JP-ASTELLAS-2013JP005875

PATIENT
  Age: 56 Year
  Sex: Female

DRUGS (4)
  1. PROGRAF [Suspect]
     Indication: COLITIS ULCERATIVE
     Dosage: 6 MG, UNKNOWN/D
     Route: 048
     Dates: start: 20130401
  2. PROGRAF [Suspect]
     Dosage: 3 MG, UNKNOWN/D
     Route: 048
  3. CORTICOSTEROID NOS [Suspect]
     Dosage: UNK
     Route: 048
  4. HUMIRA [Concomitant]
     Dosage: UNK
     Route: 065

REACTIONS (2)
  - Myelitis [Unknown]
  - Spinal compression fracture [Unknown]
